FAERS Safety Report 9287233 (Version 1)
Quarter: 2013Q2

REPORT INFORMATION
  Report Type: Spontaneous
  Country: US (occurrence: US)
  Receive Date: 20130513
  Receipt Date: 20130513
  Transmission Date: 20140414
  Serious: Yes (Hospitalization)
  Sender: FDA-Public Use
  Company Number: US-B.I. PHARMACEUTICALS,INC./RIDGEFIELD-2013-BI-12698GD

PATIENT
  Age: 85 Year
  Sex: Female

DRUGS (1)
  1. PRADAXA [Suspect]
     Indication: ATRIAL FIBRILLATION
     Route: 048

REACTIONS (11)
  - Subdural haematoma [Not Recovered/Not Resolved]
  - Subdural haemorrhage [Not Recovered/Not Resolved]
  - Confusional state [Recovered/Resolved]
  - Gait disturbance [Recovered/Resolved]
  - Disorientation [Recovered/Resolved]
  - Aphasia [Recovered/Resolved]
  - Depressed level of consciousness [Recovered/Resolved]
  - Aphasia [Recovered/Resolved]
  - Disturbance in attention [Recovered/Resolved]
  - Head injury [Unknown]
  - Headache [Unknown]
